FAERS Safety Report 15780387 (Version 1)
Quarter: 2019Q1

REPORT INFORMATION
  Report Type: Spontaneous
  Country: GB (occurrence: GB)
  Receive Date: 20190102
  Receipt Date: 20190102
  Transmission Date: 20190417
  Serious: Yes (Other)
  Sender: FDA-Public Use
  Company Number: GB-TEVA-2018-GB-993941

PATIENT
  Age: 53 Year
  Sex: Male
  Weight: 92.52 kg

DRUGS (3)
  1. ACETYLSALICYLIC ACID [Concomitant]
     Active Substance: ASPIRIN
  2. CLOPIDOGREL [Concomitant]
     Active Substance: CLOPIDOGREL BISULFATE
  3. ATORVASTATIN [Suspect]
     Active Substance: ATORVASTATIN
     Route: 048
     Dates: start: 20180612, end: 20180927

REACTIONS (5)
  - Muscle injury [Recovering/Resolving]
  - Daydreaming [Recovered/Resolved]
  - Muscle spasms [Recovering/Resolving]
  - Muscle fatigue [Recovered/Resolved with Sequelae]
  - Fatigue [Recovered/Resolved]

NARRATIVE: CASE EVENT DATE: 20180714
